FAERS Safety Report 7481046-6 (Version None)
Quarter: 2011Q2

REPORT INFORMATION
  Report Type: 
  Country: None (occurrence: None)
  Receive Date: 20110516
  Receipt Date: 20090822
  Transmission Date: 20111010
  Serious: Yes (Death, Hospitalization)
  Sender: FDA-Public Use
  Company Number: US-BAYER-200930575NA

PATIENT
  Age: 34 Year
  Sex: Male
  Weight: 58.957 kg

DRUGS (18)
  1. LASIX [Concomitant]
     Dosage: UNK
     Route: 042
     Dates: start: 20061027
  2. PHENYLEPHRINE HCL [Concomitant]
     Dosage: UNK
     Route: 042
     Dates: start: 20061027
  3. FRESH FROZEN PLASMA [Concomitant]
     Dosage: 13 U, UNK
     Route: 042
     Dates: start: 20061027
  4. TRASYLOL [Suspect]
     Dosage: 2,000,000 KIU OVER 20-30 MINUTES LOADING DOSE
     Route: 042
     Dates: start: 20061027, end: 20061027
  5. NIMBEX [Concomitant]
     Dosage: UNK
     Route: 042
     Dates: start: 20061027
  6. MILRINONE [Concomitant]
     Dosage: UNK
     Route: 042
     Dates: start: 20061027
  7. LIPITOR [Concomitant]
     Indication: HYPERLIPIDAEMIA
     Dosage: 20 MG, QD
     Route: 048
  8. INSULIN [INSULIN] [Concomitant]
     Dosage: UNK
     Route: 042
     Dates: start: 20061027
  9. CRYOPRECIPITATES [Concomitant]
     Dosage: 40 U, UNK
     Route: 042
     Dates: start: 20061027
  10. TRASYLOL [Suspect]
     Dosage: 50CC/HR
     Route: 042
     Dates: start: 20061027, end: 20061027
  11. EPINEPHRINE [Concomitant]
     Dosage: 0.05 MCG/KG/MIN
     Route: 042
     Dates: start: 20061027
  12. VISIPAQUE [Concomitant]
     Indication: CATHETERISATION CARDIAC
     Dosage: UNK
     Dates: start: 20060523
  13. PLATELETS [Concomitant]
     Dosage: 7 U, UNK
     Route: 042
     Dates: start: 20061027
  14. TRASYLOL [Suspect]
     Indication: PULMONARY VEIN STENOSIS
     Dosage: 1 ML TEST DOSE
     Route: 042
     Dates: start: 20061027
  15. LISINOPRIL [Concomitant]
     Dosage: 10 MG, QD
     Route: 048
  16. LASIX [Concomitant]
     Dosage: 20 MG, QD
  17. RED BLOOD CELLS [Concomitant]
     Dosage: 6 U, UNK
     Route: 042
     Dates: start: 20061027
  18. TRASYLOL [Suspect]
     Indication: CARDIAC PACEMAKER INSERTION
     Dosage: PUMP PRIME DOSE 200ML.
     Route: 042
     Dates: start: 20061027, end: 20061027

REACTIONS (6)
  - RENAL FAILURE [None]
  - UNEVALUABLE EVENT [None]
  - RENAL INJURY [None]
  - PAIN [None]
  - RENAL FAILURE ACUTE [None]
  - INJURY [None]
